FAERS Safety Report 8284571 (Version 6)
Quarter: 2013Q2

REPORT INFORMATION
  Report Type: Spontaneous
  Country: US (occurrence: US)
  Receive Date: 20111212
  Receipt Date: 20130423
  Transmission Date: 20140414
  Serious: Yes (Death)
  Sender: FDA-Public Use
  Company Number: US-B.I. PHARMACEUTICALS,INC./RIDGEFIELD-2011-BP-27734BP

PATIENT
  Age: 71 Year
  Sex: Female
  Weight: 87.54 kg

DRUGS (13)
  1. PRADAXA [Suspect]
     Indication: ATRIAL FIBRILLATION
     Dosage: 300 MG
     Route: 048
     Dates: start: 20110209, end: 20110909
  2. AMIODARONE [Concomitant]
     Dosage: 200 MG
     Route: 048
  3. ATIVAN [Concomitant]
     Dosage: 2 MG
     Route: 048
  4. BISOPROLOL/HCTZ [Concomitant]
  5. HYDRALAZINE [Concomitant]
     Dosage: 75 MG
     Route: 048
  6. KLOR-CON [Concomitant]
     Dosage: 20 MEQ
     Route: 048
  7. LOSARTAN/HCTZ [Concomitant]
     Route: 048
  8. NITROGLYCERIN [Concomitant]
     Indication: CHEST PAIN
     Route: 060
  9. SYNTHROID [Concomitant]
     Dosage: 25 MCG
     Route: 048
  10. TRAZODONE [Concomitant]
     Dosage: 25 MG
     Route: 048
  11. PRAVASTATIN [Concomitant]
     Dosage: 40 MG
     Route: 048
  12. TRIAZOLAM [Concomitant]
     Dosage: 0.25 MG
     Route: 048
  13. LORAZEPAM [Concomitant]
     Dosage: 3 MG
     Route: 048

REACTIONS (2)
  - Aortic dissection [Fatal]
  - Post procedural haemorrhage [Fatal]
